FAERS Safety Report 14943035 (Version 2)
Quarter: 2018Q4

REPORT INFORMATION
  Report Type: Spontaneous
  Country: JP (occurrence: JP)
  Receive Date: 20180528
  Receipt Date: 20181211
  Transmission Date: 20190204
  Serious: Yes (Death)
  Sender: FDA-Public Use
  Company Number: JP-ACTELION-A-CH2018-172047

PATIENT
  Age: 67 Year
  Sex: Female

DRUGS (18)
  1. AZOSEMIDE [Concomitant]
     Active Substance: AZOSEMIDE
     Dosage: 60 MG, QD
     Dates: start: 20180301, end: 20180314
  2. FUROSEMIDE. [Concomitant]
     Active Substance: FUROSEMIDE
     Dosage: 20 MG, QD
     Dates: start: 20180105, end: 20180109
  3. DIGOXIN. [Concomitant]
     Active Substance: DIGOXIN
     Dosage: 62.5 MCG, QD
     Dates: end: 20180301
  4. OPSUMIT [Concomitant]
     Active Substance: MACITENTAN
     Indication: PULMONARY ARTERIAL HYPERTENSION
     Dosage: 10 MG, UNK
     Dates: start: 20160602, end: 20180429
  5. FUROSEMIDE. [Concomitant]
     Active Substance: FUROSEMIDE
     Dosage: 15 MG, QD
     Dates: start: 20171216, end: 20180104
  6. AZOSEMIDE [Concomitant]
     Active Substance: AZOSEMIDE
     Dosage: 30 MG, QD
     Dates: start: 20180315, end: 20180429
  7. DIGOXIN. [Concomitant]
     Active Substance: DIGOXIN
     Dosage: 0.04 MG, QD
     Dates: start: 20180302, end: 20180429
  8. FUROSEMIDE. [Concomitant]
     Active Substance: FUROSEMIDE
     Dosage: 10 MG, QD
     Dates: end: 20171215
  9. SPIRONOLACTONE. [Concomitant]
     Active Substance: SPIRONOLACTONE
     Dosage: 25 MG, QD
     Dates: end: 20180429
  10. FUROSEMIDE. [Concomitant]
     Active Substance: FUROSEMIDE
     Dosage: 40 MG, QD
     Dates: start: 20180110, end: 20180120
  11. FUROSEMIDE. [Concomitant]
     Active Substance: FUROSEMIDE
     Dosage: 30 MG, QD
     Dates: start: 20180121, end: 20180124
  12. ALLOPURINOL. [Concomitant]
     Active Substance: ALLOPURINOL
     Dosage: 100 MG, QD
     Dates: end: 20180429
  13. WARFARIN [Concomitant]
     Active Substance: WARFARIN
     Dosage: 1.75 MG, UNK
     Dates: end: 20180429
  14. UPTRAVI [Suspect]
     Active Substance: SELEXIPAG
     Dosage: 0.4 MG, BID
     Route: 048
     Dates: start: 20180316, end: 20180429
  15. FUROSEMIDE. [Concomitant]
     Active Substance: FUROSEMIDE
     Dosage: 10 MG, QD
     Dates: start: 20180315, end: 20180429
  16. UPTRAVI [Suspect]
     Active Substance: SELEXIPAG
     Indication: PULMONARY ARTERIAL HYPERTENSION
     Dosage: 0.2 MG, BID
     Route: 048
     Dates: start: 20180109, end: 20180118
  17. UPTRAVI [Suspect]
     Active Substance: SELEXIPAG
     Dosage: 0.6 MG, QD
     Route: 048
     Dates: start: 20180119, end: 20180315
  18. FUROSEMIDE. [Concomitant]
     Active Substance: FUROSEMIDE
     Dosage: 20 MG, QD
     Dates: start: 20180125, end: 20180228

REACTIONS (3)
  - Sudden death [Fatal]
  - Oxygen saturation decreased [Fatal]
  - Oedema [Unknown]

NARRATIVE: CASE EVENT DATE: 201803
